FAERS Safety Report 21584876 (Version 1)
Quarter: 2022Q4

REPORT INFORMATION
  Report Type: Spontaneous
  Country: CN (occurrence: CN)
  Receive Date: 20221111
  Receipt Date: 20221111
  Transmission Date: 20230112
  Serious: Yes (Hospitalization, Other)
  Sender: FDA-Public Use
  Company Number: CN-ORGANON-O2211CHN000604

PATIENT
  Age: 77 Year
  Sex: Female

DRUGS (5)
  1. SIMVASTATIN [Suspect]
     Active Substance: SIMVASTATIN
     Indication: Hyperlipidaemia
     Dosage: 20MG WAS TAKEN ORALLY ONCE A DAY FOR A LONG TIME
     Route: 048
     Dates: end: 202011
  2. CYCLOSPORINE [Suspect]
     Active Substance: CYCLOSPORINE
     Dosage: 225MG ONCE A DAY
     Route: 048
     Dates: start: 202008, end: 202011
  3. CYCLOSPORINE [Suspect]
     Active Substance: CYCLOSPORINE
     Dosage: 100MG EACH TIME, TWICE A DAY
     Route: 048
     Dates: start: 202011
  4. INSULIN HUMAN [Concomitant]
     Active Substance: INSULIN HUMAN
     Indication: Type 2 diabetes mellitus
     Dosage: 24U BEFORE BREAKFAST
     Route: 058
  5. INSULIN HUMAN [Concomitant]
     Active Substance: INSULIN HUMAN
     Dosage: 22U AT DINNER
     Route: 058

REACTIONS (8)
  - Rhabdomyolysis [Recovering/Resolving]
  - Acute kidney injury [Recovering/Resolving]
  - Hyperkalaemia [Recovering/Resolving]
  - Large granular lymphocytosis [Recovering/Resolving]
  - Aplastic anaemia [Recovering/Resolving]
  - Renal failure [Recovering/Resolving]
  - Atrial fibrillation [Recovering/Resolving]
  - Hepatic function abnormal [Recovering/Resolving]

NARRATIVE: CASE EVENT DATE: 20200801
